FAERS Safety Report 13378134 (Version 1)
Quarter: 2017Q1

REPORT INFORMATION
  Report Type: Spontaneous
  Country: US (occurrence: US)
  Receive Date: 20170328
  Receipt Date: 20170328
  Transmission Date: 20170429
  Serious: Yes (Hospitalization, Other)
  Sender: FDA-Public Use
  Company Number: US-PFIZER INC-2017125801

PATIENT
  Sex: Female

DRUGS (1)
  1. GEODON [Suspect]
     Active Substance: ZIPRASIDONE HYDROCHLORIDE\ZIPRASIDONE MESYLATE
     Indication: INSOMNIA
     Dosage: 80 MG, UNK

REACTIONS (4)
  - Ataxia [Recovered/Resolved]
  - Cerebral palsy [Recovered/Resolved]
  - Decreased appetite [Recovered/Resolved]
  - Product use issue [Unknown]
